FAERS Safety Report 20909838 (Version 2)
Quarter: 2022Q4

REPORT INFORMATION
  Report Type: Report from Study
  Country: EG (occurrence: EG)
  Receive Date: 20220603
  Receipt Date: 20221117
  Transmission Date: 20230113
  Serious: Yes (Other)
  Sender: FDA-Public Use
  Company Number: EG-NOVARTISPH-NVSC2022EG126867

PATIENT
  Age: 29 Year
  Sex: Female

DRUGS (2)
  1. GILENYA [Suspect]
     Active Substance: FINGOLIMOD HYDROCHLORIDE
     Indication: Multiple sclerosis
     Dosage: 0.5 MG, QD
     Route: 048
     Dates: start: 20210110, end: 202202
  2. SOLU-MEDROL [Suspect]
     Active Substance: METHYLPREDNISOLONE SODIUM SUCCINATE
     Indication: Multiple sclerosis
     Dosage: UNK
     Route: 065

REACTIONS (18)
  - Gastrointestinal disorder [Not Recovered/Not Resolved]
  - Alopecia [Recovered/Resolved]
  - Tachycardia [Recovering/Resolving]
  - Tachypnoea [Recovering/Resolving]
  - Blood pressure increased [Not Recovered/Not Resolved]
  - Intraocular pressure increased [Not Recovered/Not Resolved]
  - White blood cell count decreased [Recovered/Resolved]
  - Multiple sclerosis relapse [Recovering/Resolving]
  - Hyperthermia [Not Recovered/Not Resolved]
  - Balance disorder [Not Recovered/Not Resolved]
  - Hypoaesthesia [Recovered/Resolved]
  - Movement disorder [Recovered/Resolved]
  - Limb discomfort [Recovering/Resolving]
  - Pain in extremity [Recovering/Resolving]
  - Dry skin [Recovering/Resolving]
  - Gait disturbance [Not Recovered/Not Resolved]
  - Fatigue [Unknown]
  - Product dose omission issue [Unknown]

NARRATIVE: CASE EVENT DATE: 20210110
